FAERS Safety Report 5888190-5 (Version None)
Quarter: 2008Q3

REPORT INFORMATION
  Report Type: 
  Country: None (occurrence: None)
  Receive Date: 20080916
  Receipt Date: 20080905
  Transmission Date: 20090109
  Serious: Yes (Hospitalization)
  Sender: FDA-Public Use
  Company Number: 2008BI023209

PATIENT
  Age: 52 Year
  Sex: Female
  Weight: 82.5547 kg

DRUGS (2)
  1. AVONEX [Suspect]
     Indication: MULTIPLE SCLEROSIS
     Dosage: 30 UG;QW;IM
     Route: 030
     Dates: start: 20070910
  2. LYRICA [Concomitant]

REACTIONS (1)
  - BENIGN NEOPLASM OF THYROID GLAND [None]
